FAERS Safety Report 5355140-X (Version None)
Quarter: 2007Q2

REPORT INFORMATION
  Report Type: 
  Country: None (occurrence: None)
  Receive Date: 20070529
  Receipt Date: 20070306
  Transmission Date: 20071010
  Serious: Yes (Other)
  Sender: FDA-Public Use
  Company Number: 2007SP004200

PATIENT
  Age: 79 Year
  Sex: Female

DRUGS (1)
  1. NITRO-DUR [Suspect]
     Indication: DRUG USE FOR UNKNOWN INDICATION
     Dosage: 0.6 MG; TDER
     Route: 062

REACTIONS (2)
  - ANGINA PECTORIS [None]
  - MALAISE [None]
